FAERS Safety Report 15415646 (Version 1)
Quarter: 2018Q3

REPORT INFORMATION
  Report Type: Other
  Country: NL (occurrence: NL)
  Receive Date: 20180922
  Receipt Date: 20180922
  Transmission Date: 20181010
  Serious: Yes (Other)
  Sender: FDA-Public Use
  Company Number: NL-APOTEX-2018AP020827

PATIENT
  Age: 75 Year
  Sex: Female

DRUGS (1)
  1. CIPROFLOXACIN. [Suspect]
     Active Substance: CIPROFLOXACIN
     Indication: INFECTION
     Dosage: 1 DF, Q.12H
     Route: 065
     Dates: start: 20171203, end: 20171205

REACTIONS (5)
  - Mucous stools [Recovered/Resolved]
  - Gastrointestinal pain [Recovered/Resolved]
  - Haematochezia [Recovered/Resolved]
  - Bladder pain [Recovered/Resolved]
  - Eructation [Recovered/Resolved]

NARRATIVE: CASE EVENT DATE: 20171203
